FAERS Safety Report 5149924-0 (Version None)
Quarter: 2006Q4

REPORT INFORMATION
  Report Type: 
  Country: None (occurrence: None)
  Receive Date: 20061108
  Receipt Date: 20060714
  Transmission Date: 20070319
  Serious: Yes (Disabling, Other)
  Sender: FDA-Public Use
  Company Number: 2006079991

PATIENT
  Age: 62 Year
  Sex: Female
  Weight: 75.2971 kg

DRUGS (6)
  1. BEXTRA [Suspect]
     Indication: ARTHRITIS
     Dosage: 20 MG (20 MG, 1 IN 1 D), ORAL
     Route: 048
     Dates: start: 20020909
  2. AMITRIPTYLINE HCL [Concomitant]
  3. EFFEXOR XR [Concomitant]
  4. LISINOPRIL [Concomitant]
  5. PREMARIN [Concomitant]
  6. PREVACID [Concomitant]

REACTIONS (2)
  - CEREBROVASCULAR ACCIDENT [None]
  - TRANSIENT ISCHAEMIC ATTACK [None]
